FAERS Safety Report 6511705-0 (Version None)
Quarter: 2009Q4

REPORT INFORMATION
  Report Type: 
  Country: None (occurrence: None)
  Receive Date: 20091222
  Receipt Date: 20090407
  Transmission Date: 20100525
  Serious: Yes (Other)
  Sender: FDA-Public Use
  Company Number: US-ASTRAZENECA-2009UW09035

PATIENT
  Age: 41 Year
  Sex: Male

DRUGS (2)
  1. CRESTOR [Suspect]
     Route: 048
     Dates: start: 20040128, end: 20040221
  2. TRICOR [Suspect]
     Route: 048
     Dates: end: 20040128

REACTIONS (1)
  - BLOOD CREATINE PHOSPHOKINASE INCREASED [None]
